FAERS Safety Report 21699972 (Version 2)
Quarter: 2022Q4

REPORT INFORMATION
  Report Type: Spontaneous
  Country: HU (occurrence: HU)
  Receive Date: 20221208
  Receipt Date: 20221212
  Transmission Date: 20230113
  Serious: Yes (Other)
  Sender: FDA-Public Use
  Company Number: HU-002147023-NVSC2022HU264108

PATIENT
  Age: 47 Year
  Sex: Female

DRUGS (2)
  1. EPIRUBICIN HYDROCHLORIDE [Suspect]
     Active Substance: EPIRUBICIN HYDROCHLORIDE
     Indication: Invasive ductal breast carcinoma
     Dosage: UNK, 4 TREATMENTS
     Route: 065
     Dates: start: 2015
  2. DOCETAXEL [Concomitant]
     Active Substance: DOCETAXEL
     Indication: Invasive ductal breast carcinoma
     Dosage: UNK, 4 TREATMENTS
     Route: 065
     Dates: start: 2015

REACTIONS (6)
  - Haemothorax [Unknown]
  - Neoplasm progression [Unknown]
  - Lymphadenopathy [Unknown]
  - Pulmonary hilum mass [Unknown]
  - Cough [Unknown]
  - COVID-19 [Unknown]

NARRATIVE: CASE EVENT DATE: 20211217
